FAERS Safety Report 5258209-3 (Version None)
Quarter: 2007Q1

REPORT INFORMATION
  Report Type: 
  Country: None (occurrence: None)
  Receive Date: 20070307
  Receipt Date: 20070226
  Transmission Date: 20070707
  Serious: Yes (Hospitalization)
  Sender: FDA-Public Use
  Company Number: JP-MERCK-0703USA00112

PATIENT
  Age: 75 Year
  Sex: Male

DRUGS (1)
  1. SINGULAIR [Suspect]
     Indication: ASTHMA
     Route: 048
     Dates: start: 20070201, end: 20070201

REACTIONS (4)
  - CARBON MONOXIDE POISONING [None]
  - DEHYDRATION [None]
  - INTESTINAL OBSTRUCTION [None]
  - SHOCK [None]
